FAERS Safety Report 10482680 (Version 6)
Quarter: 2015Q4

REPORT INFORMATION
  Report Type: Spontaneous
  Country: JP (occurrence: JP)
  Receive Date: 20140929
  Receipt Date: 20151224
  Transmission Date: 20160304
  Serious: Yes (Death, Life-Threatening, Hospitalization, Other)
  Sender: FDA-Public Use
  Company Number: PHHY2014JP125924

PATIENT
  Sex: Female
  Weight: 42 kg

DRUGS (11)
  1. QUETIAPINE FUMARATE. [Concomitant]
     Active Substance: QUETIAPINE FUMARATE
     Indication: PRODUCT USED FOR UNKNOWN INDICATION
     Dosage: 50 MG, UNK
     Route: 065
  2. YOKUKANSAN [Concomitant]
     Active Substance: HERBALS
     Dosage: 2.5 G, BID
     Route: 048
  3. MAGNESIUM OXIDE. [Concomitant]
     Active Substance: MAGNESIUM OXIDE
     Indication: PRODUCT USED FOR UNKNOWN INDICATION
     Route: 065
  4. YOKUKANSAN [Concomitant]
     Active Substance: HERBALS
     Indication: PRODUCT USED FOR UNKNOWN INDICATION
     Dosage: 2.5 G, TID
     Route: 048
  5. EXELON PATCH [Suspect]
     Active Substance: RIVASTIGMINE
     Indication: DEMENTIA ALZHEIMER^S TYPE
     Dosage: 18 MG, QD PATCH 10 (CM2)
     Route: 062
  6. UBRETID [Suspect]
     Active Substance: DISTIGMINE BROMIDE
     Indication: DYSURIA
     Dosage: 5 MG, QD
     Route: 048
     Dates: start: 20130806
  7. UBRETID [Suspect]
     Active Substance: DISTIGMINE BROMIDE
     Dosage: 5 MG, QD
     Route: 048
  8. RIVASTACH [Suspect]
     Active Substance: RIVASTIGMINE
     Dosage: 18 MG, QD
     Route: 062
  9. QUETIAPINE FUMARATE. [Concomitant]
     Active Substance: QUETIAPINE FUMARATE
     Dosage: 75 MG, UNK
     Route: 065
  10. RIVASTACH [Suspect]
     Active Substance: RIVASTIGMINE
     Indication: DEMENTIA ALZHEIMER^S TYPE
     Dosage: 18 MG, QD
     Route: 062
  11. QUETIAPINE FUMARATE. [Concomitant]
     Active Substance: QUETIAPINE FUMARATE
     Dosage: 50 MG, UNK
     Route: 065

REACTIONS (10)
  - Pneumonia aspiration [Recovered/Resolved]
  - Hiatus hernia [Unknown]
  - Decubitus ulcer [Recovered/Resolved]
  - Endotracheal intubation complication [Fatal]
  - Diarrhoea [Recovered/Resolved]
  - Dysuria [Unknown]
  - Pneumonia [Recovered/Resolved]
  - Cholinergic syndrome [Recovered/Resolved]
  - Acute respiratory failure [Recovered/Resolved]
  - Nutritional condition abnormal [Recovered/Resolved]
